FAERS Safety Report 8494135-4 (Version None)
Quarter: 2012Q3

REPORT INFORMATION
  Report Type: 
  Country: None (occurrence: None)
  Receive Date: 20120709
  Receipt Date: 20120625
  Transmission Date: 20120928
  Serious: Yes (Hospitalization)
  Sender: FDA-Public Use
  Company Number: US-ELI_LILLY_AND_COMPANY-US201206008771

PATIENT
  Age: 71 Year
  Sex: Female

DRUGS (4)
  1. HUMALOG [Suspect]
     Indication: DIABETES MELLITUS
     Dosage: 60 U, TID
     Dates: start: 20100601
  2. HUMALOG [Concomitant]
     Indication: DIABETES MELLITUS
  3. VICTOZA [Concomitant]
  4. LEVEMIR [Concomitant]

REACTIONS (8)
  - NAIL INFECTION [None]
  - RASH MACULO-PAPULAR [None]
  - NAIL AVULSION [None]
  - HAND FRACTURE [None]
  - INFECTION [None]
  - FALL [None]
  - MACULAR DEGENERATION [None]
  - FOOT FRACTURE [None]
